FAERS Safety Report 8442175-3 (Version None)
Quarter: 2012Q2

REPORT INFORMATION
  Report Type: 
  Country: None (occurrence: None)
  Receive Date: 20120615
  Receipt Date: 20120218
  Transmission Date: 20120825
  Serious: No
  Sender: FDA-Public Use
  Company Number: US-NOVEN-12US004126

PATIENT
  Sex: Male
  Weight: 27.211 kg

DRUGS (4)
  1. VITAMIN TAB [Concomitant]
     Indication: MEDICAL DIET
     Dosage: 1 DAILY
     Route: 048
  2. MELATONIN [Concomitant]
     Indication: SLEEP DISORDER
     Dosage: 1 MG, HS
     Route: 048
  3. ZOLOFT [Concomitant]
     Indication: ANXIETY
     Dosage: 25 MG, 1 1/2 TAB DAILY
     Route: 048
  4. DAYTRANA [Suspect]
     Indication: ATTENTION DEFICIT/HYPERACTIVITY DISORDER
     Dosage: 15 MG, QD
     Route: 062
     Dates: start: 20120218

REACTIONS (2)
  - MUSCLE TWITCHING [None]
  - DYSKINESIA [None]
